FAERS Safety Report 5340966-9 (Version None)
Quarter: 2007Q2

REPORT INFORMATION
  Report Type: 
  Country: None (occurrence: None)
  Receive Date: 20070405
  Receipt Date: 20061107
  Transmission Date: 20071010
  Serious: No
  Sender: FDA-Public Use
  Company Number: US200607000293

PATIENT
  Age: 22 Year
  Sex: Male
  Weight: 89.3 kg

DRUGS (7)
  1. CYMBALTA [Suspect]
     Dosage: SEE IMAGE
     Route: 048
     Dates: start: 20060630, end: 20060101
  2. CYMBALTA [Suspect]
     Dosage: SEE IMAGE
     Route: 048
     Dates: end: 20060601
  3. CYMBALTA [Suspect]
     Dosage: SEE IMAGE
     Route: 048
     Dates: start: 20051101
  4. CLONAZEPAM [Concomitant]
  5. LAMICTAL [Concomitant]
  6. RISPERIDONE [Concomitant]
  7. DEPAKOTE [Concomitant]

REACTIONS (2)
  - DRUG WITHDRAWAL SYNDROME [None]
  - MANIA [None]
